FAERS Safety Report 15200233 (Version 1)
Quarter: 2018Q3

REPORT INFORMATION
  Report Type: Spontaneous
  Country: US (occurrence: US)
  Receive Date: 20180726
  Receipt Date: 20180726
  Transmission Date: 20181010
  Serious: No
  Sender: FDA-Public Use
  Company Number: US-BION-006808

PATIENT
  Age: 67 Year
  Sex: Female

DRUGS (6)
  1. MAGNESIUM HYDROXIDE. [Concomitant]
     Active Substance: MAGNESIUM HYDROXIDE
  2. SYNTHROID [Concomitant]
     Active Substance: LEVOTHYROXINE SODIUM
     Dosage: PINK ONE
  3. LIOTHYRONINE [Concomitant]
     Active Substance: LIOTHYRONINE
     Dosage: HALF OF LIOTHYRONINE TABLET
  4. CALCITRIOL. [Suspect]
     Active Substance: CALCITRIOL
     Indication: PARATHYROIDECTOMY
     Dosage: STRENGTH: 0.25 MCG, SOFT GELS. LIGHT ORANGE OVAL SHAPED, H 118
     Route: 048
     Dates: start: 20171117
  5. BABY ASPIRIN [Concomitant]
     Active Substance: ASPIRIN
  6. CALCIUM CARBONATE. [Concomitant]
     Active Substance: CALCIUM CARBONATE
     Dosage: 1500

REACTIONS (5)
  - Diarrhoea [Not Recovered/Not Resolved]
  - Abdominal pain lower [Not Recovered/Not Resolved]
  - Back pain [Not Recovered/Not Resolved]
  - Constipation [Not Recovered/Not Resolved]
  - Flatulence [Not Recovered/Not Resolved]
